FAERS Safety Report 25256673 (Version 1)
Quarter: 2025Q2

REPORT INFORMATION
  Report Type: Spontaneous
  Country: US (occurrence: None)
  Receive Date: 20250430
  Receipt Date: 20250430
  Transmission Date: 20250716
  Serious: Yes (Hospitalization)
  Sender: FDA-CTU
  Company Number: None

PATIENT
  Age: 55 Year
  Sex: Female
  Weight: 95.3 kg

DRUGS (1)
  1. BELATACEPT [Suspect]
     Active Substance: BELATACEPT
     Indication: Renal transplant
     Dosage: FREQUENCY : MONTHLY;?
     Route: 042
     Dates: start: 20230722

REACTIONS (1)
  - Nephrectomy [None]

NARRATIVE: CASE EVENT DATE: 20250425
